FAERS Safety Report 7551648-7 (Version None)
Quarter: 2011Q2

REPORT INFORMATION
  Report Type: 
  Country: None (occurrence: None)
  Receive Date: 20110616
  Receipt Date: 20110610
  Transmission Date: 20111010
  Serious: Yes (Other)
  Sender: FDA-Public Use
  Company Number: US-ABBOTT-11P-163-0731912-00

PATIENT
  Sex: Male
  Weight: 99.88 kg

DRUGS (2)
  1. DEPAKOTE [Suspect]
     Indication: BIPOLAR DISORDER
     Dosage: UNKNOWN DOSE
     Dates: start: 20080101, end: 20110501
  2. REMICADE [Concomitant]
     Indication: PSORIATIC ARTHROPATHY

REACTIONS (8)
  - COAGULATION TIME PROLONGED [None]
  - IMPAIRED HEALING [None]
  - YELLOW SKIN [None]
  - TOXICITY TO VARIOUS AGENTS [None]
  - CONTUSION [None]
  - MUSCULAR DYSTROPHY [None]
  - MUSCLE ENZYME INCREASED [None]
  - DYSPNOEA [None]
